FAERS Safety Report 10837886 (Version 1)
Quarter: 2015Q1

REPORT INFORMATION
  Report Type: Report from Study
  Country: US (occurrence: US)
  Receive Date: 20150219
  Receipt Date: 20150219
  Transmission Date: 20150721
  Serious: No
  Sender: FDA-Public Use
  Company Number: US-ABBVIE-14P-163-1220480-00

PATIENT
  Age: 46 Year
  Sex: Female

DRUGS (5)
  1. FLINTSTONES [Concomitant]
     Indication: VITAMIN SUPPLEMENTATION
  2. IBUPROFEN. [Concomitant]
     Active Substance: IBUPROFEN
     Indication: PAIN
  3. HUMIRA [Suspect]
     Active Substance: ADALIMUMAB
     Indication: PSORIASIS
     Dates: start: 20140222, end: 20140222
  4. HUMIRA [Suspect]
     Active Substance: ADALIMUMAB
     Dates: start: 20140301
  5. UNKNOWN MEDICATION [Concomitant]
     Active Substance: UNSPECIFIED INGREDIENT
     Indication: HYPERTENSION

REACTIONS (4)
  - Pain [Not Recovered/Not Resolved]
  - Erythema [Not Recovered/Not Resolved]
  - Nasopharyngitis [Not Recovered/Not Resolved]
  - Facial pain [Not Recovered/Not Resolved]

NARRATIVE: CASE EVENT DATE: 201403
